FAERS Safety Report 11036213 (Version 3)
Quarter: 2016Q2

REPORT INFORMATION
  Report Type: Spontaneous
  Country: US (occurrence: US)
  Receive Date: 20150415
  Receipt Date: 20160530
  Transmission Date: 20160815
  Serious: Yes (Other)
  Sender: FDA-Public Use
  Company Number: US-JNJFOC-20130815892

PATIENT
  Sex: Female

DRUGS (1)
  1. XARELTO [Suspect]
     Active Substance: RIVAROXABAN
     Indication: PRODUCT USED FOR UNKNOWN INDICATION
     Route: 065
     Dates: start: 201305, end: 2013

REACTIONS (7)
  - Dizziness [Unknown]
  - Chest pain [Unknown]
  - Mental impairment [Unknown]
  - Feeling abnormal [Unknown]
  - Adverse event [Unknown]
  - Memory impairment [Unknown]
  - Apathy [Unknown]

NARRATIVE: CASE EVENT DATE: 2013
